FAERS Safety Report 6216135-7 (Version None)
Quarter: 2009Q2

REPORT INFORMATION
  Report Type: 
  Country: None (occurrence: None)
  Receive Date: 20090603
  Receipt Date: 20090603
  Transmission Date: 20091009
  Serious: No
  Sender: FDA-Public Use
  Company Number: None

PATIENT
  Age: 74 Year
  Sex: Male
  Weight: 95.3 kg

DRUGS (2)
  1. SIMVASTATIN [Suspect]
     Dosage: 80MG EVERY DATY PO
     Route: 048
     Dates: start: 20041001, end: 20081010
  2. DILTIAZEM [Suspect]
     Dosage: 240 MG EVERY DAY PO
     Route: 048
     Dates: start: 20080801, end: 20081010

REACTIONS (4)
  - BLOOD CREATINE PHOSPHOKINASE INCREASED [None]
  - HEPATIC ENZYME INCREASED [None]
  - RENAL FAILURE ACUTE [None]
  - RHABDOMYOLYSIS [None]
